FAERS Safety Report 23127124 (Version 2)
Quarter: 2023Q4

REPORT INFORMATION
  Report Type: Spontaneous
  Country: GB (occurrence: GB)
  Receive Date: 20231030
  Receipt Date: 20231106
  Transmission Date: 20240110
  Serious: Yes (Hospitalization, Other)
  Sender: FDA-Public Use
  Company Number: GB-BAXTER-2023BAX033872

PATIENT
  Sex: Female

DRUGS (4)
  1. SODIUM CHLORIDE [Suspect]
     Active Substance: SODIUM CHLORIDE
     Indication: Medication dilution
     Dosage: UNK
     Route: 042
     Dates: start: 20231013
  2. SODIUM CHLORIDE [Suspect]
     Active Substance: SODIUM CHLORIDE
     Dosage: UNK
     Route: 042
     Dates: start: 20231013
  3. COLISTIMETHATE SODIUM [Suspect]
     Active Substance: COLISTIMETHATE SODIUM
     Indication: Antibiotic therapy
     Dosage: 2 MU (MILLION IU) (IN 54 ML TOTAL VOLUME), TDS
     Route: 042
     Dates: start: 20231013
  4. CEFTAZIDIME [Suspect]
     Active Substance: CEFTAZIDIME
     Indication: Antibiotic therapy
     Dosage: 3 G (IN 100 ML TOTAL VOLUME), TDS
     Route: 042
     Dates: start: 20231013

REACTIONS (5)
  - Malaise [Unknown]
  - Fungal infection [Unknown]
  - Catheter site infection [Unknown]
  - Myalgia [Unknown]
  - Gait inability [Unknown]
